FAERS Safety Report 12541950 (Version 2)
Quarter: 2016Q3

REPORT INFORMATION
  Report Type: Spontaneous
  Country: US (occurrence: US)
  Receive Date: 20160708
  Receipt Date: 20160816
  Transmission Date: 20161109
  Serious: Yes (Other)
  Sender: FDA-Public Use
  Company Number: US-009507513-1607USA000522

PATIENT
  Age: 56 Year
  Sex: Male

DRUGS (5)
  1. COZAAR [Suspect]
     Active Substance: LOSARTAN POTASSIUM
     Route: 048
  2. CARVEDILOL. [Suspect]
     Active Substance: CARVEDILOL
  3. MINOXIDIL. [Suspect]
     Active Substance: MINOXIDIL
  4. NIFEDIPINE. [Suspect]
     Active Substance: NIFEDIPINE
     Route: 048
  5. ISOSORBIDE MONONITRATE. [Suspect]
     Active Substance: ISOSORBIDE MONONITRATE
     Route: 048

REACTIONS (1)
  - Hypertension [Unknown]
